FAERS Safety Report 5418289-9 (Version None)
Quarter: 2007Q3

REPORT INFORMATION
  Report Type: 
  Country: None (occurrence: None)
  Receive Date: 20070817
  Receipt Date: 20070807
  Transmission Date: 20080115
  Serious: Yes (Hospitalization, Disabling)
  Sender: FDA-Public Use
  Company Number: JP-ASTRAZENECA-2006SE06978

PATIENT
  Sex: Male
  Weight: 3 kg

DRUGS (2)
  1. CANDESARTAN CILEXETIL [Suspect]
     Indication: CARDIAC FAILURE
     Route: 064
     Dates: start: 20061101, end: 20061218
  2. LUPRAC [Concomitant]
     Route: 064
     Dates: start: 20061218, end: 20061221

REACTIONS (2)
  - NEONATAL HYPOTENSION [None]
  - RENAL FAILURE NEONATAL [None]
